FAERS Safety Report 5140589-0 (Version None)
Quarter: 2006Q4

REPORT INFORMATION
  Report Type: 
  Country: None (occurrence: None)
  Receive Date: 20061025
  Receipt Date: 20061012
  Transmission Date: 20070319
  Serious: Yes (Hospitalization)
  Sender: FDA-Public Use
  Company Number: 218778

PATIENT
  Sex: Female
  Weight: 65 kg

DRUGS (4)
  1. AVASTIN [Suspect]
     Indication: PANCREATIC CARCINOMA
     Dosage: 650 MG, INTRAVENOUS
     Route: 042
     Dates: start: 20050929, end: 20050929
  2. GEMCITABINE [Suspect]
     Indication: PANCREATIC CARCINOMA
     Dosage: 1670 MG, INTRAVENOUS
     Route: 042
     Dates: start: 20050929, end: 20050929
  3. OXALIPLATIN [Suspect]
     Indication: PANCREATIC CARCINOMA
     Dosage: 167 MG, INTRAVENOUS
     Route: 042
     Dates: start: 20050929, end: 20050929
  4. COMBINATION CHEMOTHERAPY DRUGS (ANTINEOPLASTIC AGENT NOS) [Concomitant]

REACTIONS (3)
  - AGITATION [None]
  - CEREBROVASCULAR ACCIDENT [None]
  - MOOD ALTERED [None]
